FAERS Safety Report 7710573-9 (Version None)
Quarter: 2011Q3

REPORT INFORMATION
  Report Type: 
  Country: None (occurrence: None)
  Receive Date: 20110825
  Receipt Date: 20110814
  Transmission Date: 20111222
  Serious: Yes (Other)
  Sender: FDA-Public Use
  Company Number: MA-MYLANLABS-2011S1017351

PATIENT
  Age: 42 Year
  Sex: Male

DRUGS (2)
  1. CORTICOSTEROIDS [Suspect]
     Route: 065
     Dates: start: 20060101
  2. METHOTREXATE [Suspect]
     Indication: PEMPHIGUS
     Route: 065
     Dates: start: 20060101

REACTIONS (1)
  - VISCERAL LEISHMANIASIS [None]
